FAERS Safety Report 19096233 (Version 1)
Quarter: 2021Q2

REPORT INFORMATION
  Report Type: Spontaneous
  Country: US (occurrence: US)
  Receive Date: 20210405
  Receipt Date: 20210405
  Transmission Date: 20210717
  Serious: Yes (Other)
  Sender: FDA-Public Use
  Company Number: None

PATIENT
  Age: 73 Year
  Sex: Female
  Weight: 62.6 kg

DRUGS (2)
  1. BAMLANIVIMAB. [Suspect]
     Active Substance: BAMLANIVIMAB
     Indication: COVID-19
     Dosage: ?          OTHER FREQUENCY:ONCE;?
     Route: 042
     Dates: start: 20210313, end: 20210313
  2. LORAZEPAM TABLET [Concomitant]
     Active Substance: LORAZEPAM
     Dates: start: 20210313, end: 20210313

REACTIONS (2)
  - Respiratory failure [None]
  - Pyrexia [None]

NARRATIVE: CASE EVENT DATE: 20210329
